FAERS Safety Report 5002417-3 (Version None)
Quarter: 2006Q2

REPORT INFORMATION
  Report Type: 
  Country: None (occurrence: None)
  Receive Date: 20060510
  Receipt Date: 20060501
  Transmission Date: 20061013
  Serious: Yes (Hospitalization, Other)
  Sender: FDA-Public Use
  Company Number: 26455

PATIENT
  Age: 63 Year
  Sex: Female

DRUGS (3)
  1. NOREPINEPHRINE BITARTRATE [Suspect]
     Indication: WRONG DRUG ADMINISTERED
     Dosage: 10MG IV PUSH
     Route: 042
     Dates: start: 20050906
  2. BUMETANIDE [Suspect]
  3. METROCLOPRAMIDE [Concomitant]

REACTIONS (5)
  - CHEST PAIN [None]
  - CIRCUMSTANCE OR INFORMATION CAPABLE OF LEADING TO MEDICATION ERROR [None]
  - DYSPNOEA [None]
  - MEDICATION ERROR [None]
  - WRONG DRUG ADMINISTERED [None]
